FAERS Safety Report 23819381 (Version 2)
Quarter: 2024Q3

REPORT INFORMATION
  Report Type: Spontaneous
  Country: US (occurrence: US)
  Receive Date: 20240506
  Receipt Date: 20240806
  Transmission Date: 20241017
  Serious: No
  Sender: LUPIN
  Company Number: US-LUPIN PHARMACEUTICALS INC.-2024-03556

PATIENT

DRUGS (1)
  1. TESTOSTERONE GEL 1.62% [Suspect]
     Active Substance: TESTOSTERONE
     Indication: Product used for unknown indication
     Dosage: UNK (3 PUMPS IN A DAY)
     Route: 065

REACTIONS (4)
  - Product container issue [Unknown]
  - Product packaging quantity issue [Unknown]
  - Drug dose omission by device [Unknown]
  - No adverse event [Unknown]
